FAERS Safety Report 7758572-5 (Version None)
Quarter: 2011Q3

REPORT INFORMATION
  Report Type: 
  Country: None (occurrence: None)
  Receive Date: 20110919
  Receipt Date: 20110906
  Transmission Date: 20111222
  Serious: Yes (Other)
  Sender: FDA-Public Use
  Company Number: DE-ELI_LILLY_AND_COMPANY-DE201109001206

PATIENT
  Sex: Male

DRUGS (4)
  1. CYMBALTA [Suspect]
     Dosage: 30 MG, UNK
     Route: 048
  2. DICLOFENAC SODIUM [Concomitant]
     Dosage: UNK, PRN
  3. CYMBALTA [Suspect]
     Dosage: 60 MG, UNK
     Route: 048
  4. OMEPRAZOLE [Concomitant]
     Dosage: UNK, PRN

REACTIONS (1)
  - HYPERSENSITIVITY [None]
